FAERS Safety Report 8530074-8 (Version None)
Quarter: 2012Q3

REPORT INFORMATION
  Report Type: 
  Country: None (occurrence: None)
  Receive Date: 20120723
  Receipt Date: 20120718
  Transmission Date: 20120928
  Serious: Yes (Death, Hospitalization)
  Sender: FDA-Public Use
  Company Number: PHHY2012MX019569

PATIENT
  Sex: Female

DRUGS (3)
  1. ZOLEDRONOC ACID [Suspect]
     Indication: OSTEOPOROSIS
     Dosage: 5 MG/100 ML
     Route: 042
  2. ZOLEDRONOC ACID [Suspect]
     Dosage: 5 MG/100 ML
     Route: 042
     Dates: start: 20111101
  3. ZOLEDRONOC ACID [Suspect]
     Dosage: 5 MG/100 ML
     Route: 042

REACTIONS (4)
  - SPINAL COLUMN INJURY [None]
  - ARTHRALGIA [None]
  - MUSCULOSKELETAL CHEST PAIN [None]
  - DEATH [None]
